FAERS Safety Report 7996189-8 (Version None)
Quarter: 2011Q4

REPORT INFORMATION
  Report Type: 
  Country: None (occurrence: None)
  Receive Date: 20111220
  Receipt Date: 20111216
  Transmission Date: 20120403
  Serious: Yes (Death, Hospitalization, Other)
  Sender: FDA-Public Use
  Company Number: PHHY2011JP69540

PATIENT
  Age: 86 Year
  Sex: Male
  Weight: 54 kg

DRUGS (3)
  1. ZOMETA [Suspect]
     Indication: METASTASES TO BONE
     Dosage: 4 MG, PER ADMINISTRATION
     Route: 041
     Dates: start: 20110713
  2. LACTEC [Concomitant]
  3. KAYEXALATE [Concomitant]

REACTIONS (10)
  - RENAL IMPAIRMENT [None]
  - INCONTINENCE [None]
  - DYSLALIA [None]
  - BACK PAIN [None]
  - DECREASED APPETITE [None]
  - HYPERKALAEMIA [None]
  - MUSCULAR WEAKNESS [None]
  - METABOLIC ACIDOSIS [None]
  - FALL [None]
  - PYREXIA [None]
